FAERS Safety Report 12667958 (Version 2)
Quarter: 2016Q3

REPORT INFORMATION
  Report Type: Spontaneous
  Country: US (occurrence: US)
  Receive Date: 20160819
  Receipt Date: 20160928
  Transmission Date: 20161109
  Serious: Yes (Other)
  Sender: FDA-Public Use
  Company Number: US-PFIZER INC-2016390590

PATIENT
  Sex: Female
  Weight: 73 kg

DRUGS (2)
  1. PREMARIN [Suspect]
     Active Substance: ESTROGENS, CONJUGATED
     Indication: HOT FLUSH
     Dosage: 0.625 MG, 1X/DAY
     Route: 048
     Dates: start: 2003, end: 2013
  2. LORAZEPAM. [Concomitant]
     Active Substance: LORAZEPAM
     Indication: ANXIETY
     Dosage: 1 MG, 3X/DAY
     Dates: start: 1999

REACTIONS (5)
  - Blood cholesterol increased [Unknown]
  - Gastric disorder [Not Recovered/Not Resolved]
  - Pancreatic neoplasm [Unknown]
  - Hepatic neoplasm [Unknown]
  - Abdominal pain upper [Not Recovered/Not Resolved]
